FAERS Safety Report 4895236-X (Version None)
Quarter: 2006Q1

REPORT INFORMATION
  Report Type: 
  Country: None (occurrence: None)
  Receive Date: 20060130
  Receipt Date: 20060125
  Transmission Date: 20060701
  Serious: Yes (Other)
  Sender: FDA-Public Use
  Company Number: US-GLAXOSMITHKLINE-A0590789A

PATIENT
  Age: 64 Year
  Sex: Female

DRUGS (8)
  1. ADVAIR DISKUS 100/50 [Suspect]
     Indication: DRUG USE FOR UNKNOWN INDICATION
     Route: 055
     Dates: start: 20051013
  2. ALBUTEROL SULFATE AUTOHALER [Concomitant]
     Route: 065
     Dates: start: 20051013
  3. ATROVENT [Concomitant]
     Route: 065
     Dates: start: 20051101
  4. NORVASC [Concomitant]
     Dosage: 10MG PER DAY
     Route: 065
     Dates: start: 19751001
  5. LASIX [Concomitant]
     Dosage: 20MG PER DAY
     Route: 065
     Dates: start: 20051013
  6. LOPRESSOR [Concomitant]
     Dosage: 50MG TWICE PER DAY
     Route: 065
     Dates: start: 19951001
  7. SYNTHROID [Concomitant]
     Dosage: 75MCG PER DAY
     Dates: start: 20051001
  8. PROTONIX [Concomitant]
     Dosage: 40MG PER DAY
     Route: 065
     Dates: start: 20060101

REACTIONS (2)
  - ANGINA PECTORIS [None]
  - EXTRASYSTOLES [None]
